FAERS Safety Report 17367118 (Version 1)
Quarter: 2020Q1

REPORT INFORMATION
  Report Type: Spontaneous
  Country: FR (occurrence: FR)
  Receive Date: 20200204
  Receipt Date: 20200204
  Transmission Date: 20200409
  Serious: Yes (Death)
  Sender: FDA-Public Use
  Company Number: FR-PFIZER INC-2020047190

PATIENT
  Age: 82 Year
  Sex: Male
  Weight: 52 kg

DRUGS (3)
  1. IRINOTECAN HCL [Suspect]
     Active Substance: IRINOTECAN HYDROCHLORIDE
     Indication: RECTAL CANCER
     Dosage: 280 MG,  (EVERY 2 WEEKS)
     Route: 040
     Dates: start: 20191118, end: 20191216
  2. FLUOROURACILE ACCORD [Suspect]
     Active Substance: FLUOROURACIL
     Indication: RECTAL CANCER
     Dosage: 3200 MG, (EVERY 2 WEEKS)
     Route: 042
     Dates: start: 20191118, end: 20191216
  3. ZALTRAP [Suspect]
     Active Substance: ZIV-AFLIBERCEPT
     Indication: RECTAL CANCER
     Dosage: 230 MG, (EVERY 2 WEEKS)
     Route: 042
     Dates: start: 20191118, end: 20191216

REACTIONS (3)
  - Neutropenic colitis [Fatal]
  - Vomiting [Recovered/Resolved]
  - Diarrhoea [Fatal]

NARRATIVE: CASE EVENT DATE: 201911
